FAERS Safety Report 13926218 (Version 1)
Quarter: 2017Q3

REPORT INFORMATION
  Report Type: Spontaneous
  Country: CN (occurrence: CN)
  Receive Date: 20170831
  Receipt Date: 20170831
  Transmission Date: 20171127
  Serious: Yes (Hospitalization, Other)
  Sender: FDA-Public Use
  Company Number: CN-PFIZER INC-2017374629

PATIENT
  Age: 61 Year
  Sex: Female
  Weight: 80 kg

DRUGS (4)
  1. KEWEI [Concomitant]
     Indication: VIRAL INFECTION
     Dosage: 75 MG, 2X/DAY
     Route: 048
     Dates: start: 20110607, end: 20170611
  2. LIPITOR [Suspect]
     Active Substance: ATORVASTATIN CALCIUM
     Indication: HYPERLIPIDAEMIA
     Dosage: 20 MG, 1X/DAY
     Route: 048
     Dates: start: 20170607, end: 20170611
  3. LIFUXIN [Concomitant]
     Indication: LUNG INFECTION
     Dosage: 0.4 G, 1X/DAY
     Route: 041
     Dates: start: 20170607, end: 20170611
  4. CONCOR [Concomitant]
     Active Substance: BISOPROLOL FUMARATE
     Indication: HYPERTENSION
     Dosage: 2.5 MG, 1X/DAY
     Route: 048
     Dates: start: 20170607, end: 20170611

REACTIONS (4)
  - Fatigue [Unknown]
  - Blood creatine phosphokinase increased [Recovered/Resolved]
  - Headache [Unknown]
  - Pyrexia [Unknown]

NARRATIVE: CASE EVENT DATE: 20170608
